FAERS Safety Report 22166915 (Version 2)
Quarter: 2023Q2

REPORT INFORMATION
  Report Type: Report from Study
  Country: US (occurrence: US)
  Receive Date: 20230403
  Receipt Date: 20230516
  Transmission Date: 20230722
  Serious: Yes (Hospitalization, Other)
  Sender: FDA-Public Use
  Company Number: US-MYLANLABS-2023M1034130

PATIENT
  Sex: Female
  Weight: 109.04 kg

DRUGS (5)
  1. CLOZAPINE [Suspect]
     Active Substance: CLOZAPINE
     Indication: Schizophrenia
     Dosage: UNK
     Route: 048
     Dates: end: 20230314
  2. CLOZAPINE [Suspect]
     Active Substance: CLOZAPINE
     Dosage: 300 MILLIGRAM, QD (QHS)
     Route: 048
     Dates: start: 20220620, end: 20230505
  3. CLOZAPINE [Suspect]
     Active Substance: CLOZAPINE
     Dosage: UNK
     Route: 048
  4. LITHIUM [Concomitant]
     Active Substance: LITHIUM
     Dosage: 150 MILLIGRAM, BID
     Route: 048
  5. VALPROIC ACID [Concomitant]
     Active Substance: VALPROIC ACID
     Dosage: 750 MILLIGRAM, BID
     Route: 048

REACTIONS (3)
  - Metabolic encephalopathy [Unknown]
  - Delirium [Unknown]
  - Septic shock [Unknown]
